FAERS Safety Report 9925275 (Version 1)
Quarter: 2014Q1

REPORT INFORMATION
  Report Type: Spontaneous
  Country: US (occurrence: US)
  Receive Date: 20140226
  Receipt Date: 20140226
  Transmission Date: 20141002
  Serious: No
  Sender: FDA-Public Use
  Company Number: US-B.I. PHARMACEUTICALS,INC./RIDGEFIELD-2014-BI-07345BP

PATIENT
  Age: 69 Year
  Sex: Male
  Weight: 83 kg

DRUGS (7)
  1. SPIRIVA [Suspect]
     Indication: COUGH
     Dosage: 18 MCG
     Route: 055
     Dates: start: 201402
  2. SPIRIVA [Suspect]
     Indication: INCREASED UPPER AIRWAY SECRETION
  3. METOPROLOL [Concomitant]
     Indication: DYSPNOEA
     Dosage: 100 MG
     Route: 048
     Dates: start: 201302
  4. AMLODIPINE [Concomitant]
     Indication: MYOCARDIAL INFARCTION
     Dosage: 5 MG
     Route: 048
     Dates: start: 201302
  5. HYDROCHLOROTHIAZIDE [Concomitant]
     Indication: MYOCARDIAL INFARCTION
     Dosage: 25 MG
     Route: 048
     Dates: start: 201302
  6. WARFARIN [Concomitant]
     Indication: CEREBROVASCULAR ACCIDENT
     Route: 048
     Dates: start: 201302
  7. VENTOLIN [Concomitant]
     Indication: DYSPNOEA
     Dosage: 8 PUF
     Route: 055
     Dates: start: 201402

REACTIONS (2)
  - Dry mouth [Unknown]
  - Off label use [Unknown]
